FAERS Safety Report 4846045-9 (Version None)
Quarter: 2005Q4

REPORT INFORMATION
  Report Type: 
  Country: None (occurrence: None)
  Receive Date: 20051130
  Receipt Date: 20051114
  Transmission Date: 20060501
  Serious: Yes (Life-Threatening, Hospitalization, Disabling)
  Sender: FDA-Public Use
  Company Number: 98/03473-USE

PATIENT
  Age: 57 Year
  Sex: Male
  Weight: 121 kg

DRUGS (9)
  1. FLUDARA [Suspect]
     Indication: CHRONIC LYMPHOCYTIC LEUKAEMIA
     Dosage: SEE IMAGE
     Route: 042
     Dates: start: 19980803, end: 19980807
  2. FLUDARA [Suspect]
     Indication: CHRONIC LYMPHOCYTIC LEUKAEMIA
     Dosage: SEE IMAGE
     Route: 042
     Dates: start: 19980831, end: 19980904
  3. FLUDARA [Suspect]
     Indication: CHRONIC LYMPHOCYTIC LEUKAEMIA
     Dosage: SEE IMAGE
     Route: 042
     Dates: start: 19980928, end: 19981002
  4. CYCLOPHOSPHAMIDE [Concomitant]
  5. GM-CSF (GRANULOCYTE MARCROPHAGE COLONY STIM FACTOR) [Concomitant]
  6. HEPARIN [Concomitant]
  7. ASPIRIN [Concomitant]
  8. ANTIBIOTICS [Concomitant]
  9. LEVOTHYROXINE SODIUM [Concomitant]

REACTIONS (9)
  - BLINDNESS TRANSIENT [None]
  - COLOUR BLINDNESS [None]
  - FEBRILE NEUTROPENIA [None]
  - GUILLAIN-BARRE SYNDROME [None]
  - LISTERIOSIS [None]
  - NEUROPATHY PERIPHERAL [None]
  - NEUROTOXICITY [None]
  - OEDEMA [None]
  - PARAPLEGIA [None]
